FAERS Safety Report 12463566 (Version 1)
Quarter: 2016Q2

REPORT INFORMATION
  Report Type: Spontaneous
  Country: US (occurrence: None)
  Receive Date: 20160613
  Receipt Date: 20160613
  Transmission Date: 20160815
  Serious: Yes (Life-Threatening, Other)
  Sender: FDA-Public Use
  Company Number: None

PATIENT
  Age: 23 Year
  Sex: Female
  Weight: 63.5 kg

DRUGS (3)
  1. CAMBIA [Concomitant]
     Active Substance: DICLOFENAC POTASSIUM
  2. ZANAFLEX [Concomitant]
     Active Substance: TIZANIDINE HYDROCHLORIDE
  3. NASAL DECONGESTANT PE NON DROWSY MAXIMUM STRENGTH [Suspect]
     Active Substance: PHENYLEPHRINE HYDROCHLORIDE
     Indication: NASAL CONGESTION
     Route: 048
     Dates: start: 20160606, end: 20160607

REACTIONS (3)
  - Suicidal ideation [None]
  - Depression [None]
  - Crying [None]

NARRATIVE: CASE EVENT DATE: 20160607
